FAERS Safety Report 24021603 (Version 5)
Quarter: 2024Q3

REPORT INFORMATION
  Report Type: Spontaneous
  Country: FR (occurrence: FR)
  Receive Date: 20240627
  Receipt Date: 20240926
  Transmission Date: 20241016
  Serious: Yes (Death)
  Sender: ROCHE
  Company Number: FR-ROCHE-3573657

PATIENT
  Age: 77 Year
  Sex: Male

DRUGS (2)
  1. COLUMVI [Suspect]
     Active Substance: GLOFITAMAB-GXBM
     Indication: Diffuse large B-cell lymphoma refractory
     Dosage: 2.5 MG
     Route: 065
     Dates: start: 20240430
  2. OBINUTUZUMAB [Suspect]
     Active Substance: OBINUTUZUMAB
     Indication: Diffuse large B-cell lymphoma refractory
     Route: 042
     Dates: start: 20240423

REACTIONS (2)
  - Fall [Unknown]
  - Disease progression [Fatal]

NARRATIVE: CASE EVENT DATE: 20240505
